FAERS Safety Report 18428425 (Version 3)
Quarter: 2020Q4

REPORT INFORMATION
  Report Type: Spontaneous
  Country: NL (occurrence: NL)
  Receive Date: 20201026
  Receipt Date: 20201201
  Transmission Date: 20210114
  Serious: Yes (Hospitalization)
  Sender: FDA-Public Use
  Company Number: NL-NOVOPROD-760396

PATIENT
  Age: 43 Year
  Sex: Male

DRUGS (1)
  1. NOVORAPID [Suspect]
     Active Substance: INSULIN ASPART
     Indication: DIABETES MELLITUS
     Dosage: UNK
     Route: 058

REACTIONS (4)
  - Product physical issue [Unknown]
  - Hyperglycaemic unconsciousness [Unknown]
  - Wrong technique in product usage process [Unknown]
  - Product leakage [Unknown]

NARRATIVE: CASE EVENT DATE: 20201008
